FAERS Safety Report 8791931 (Version 2)
Quarter: 2012Q4

REPORT INFORMATION
  Report Type: 
  Country: US (occurrence: US)
  Receive Date: 20120918
  Receipt Date: 20121009
  Transmission Date: 20130627
  Serious: Yes (Hospitalization)
  Sender: FDA-Public Use
  Company Number: US-SANOFI-AVENTIS-2012SA065550

PATIENT
  Age: 79 Year
  Sex: Female

DRUGS (6)
  1. PLAVIX [Suspect]
     Indication: TRANSIENT ISCHAEMIC ATTACK
     Route: 048
     Dates: start: 201012
  2. ATORVASTATIN [Concomitant]
     Indication: HIGH CHOLESTEROL
  3. ZETIA [Concomitant]
     Indication: HIGH CHOLESTEROL
  4. CALCIUM [Concomitant]
  5. VITAMIN D [Concomitant]
  6. COQ10 [Concomitant]

REACTIONS (4)
  - Transient ischaemic attack [Recovered/Resolved]
  - Off label use [Unknown]
  - Aphonia [Unknown]
  - Chromaturia [Recovered/Resolved]
